FAERS Safety Report 8982078 (Version 1)
Quarter: 2012Q4

REPORT INFORMATION
  Report Type: 
  Country: US (occurrence: US)
  Receive Date: 20121212
  Receipt Date: 20121212
  Transmission Date: 20130627
  Serious: Yes (Other)
  Sender: FDA-Public Use
  Company Number: US-ASTELLAS-680195

PATIENT
  Sex: Female
  Weight: 62.6 kg

DRUGS (4)
  1. TARCEVA [Suspect]
     Indication: NON-SMALL CELL LUNG CANCER
     Route: 048
  2. TARCEVA [Suspect]
     Indication: MALIGNANT RESPIRATORY TRACT NEOPLASM
     Dosage: DOSE REDUCED
     Route: 048
  3. LOSARTAN POTASSIUM [Concomitant]
  4. VITAMIN [Concomitant]

REACTIONS (4)
  - Pericardial effusion [Not Recovered/Not Resolved]
  - Rash [Recovered/Resolved]
  - Pruritus [Unknown]
  - Dry skin [Unknown]
